FAERS Safety Report 7506668-5 (Version None)
Quarter: 2011Q2

REPORT INFORMATION
  Report Type: 
  Country: None (occurrence: None)
  Receive Date: 20110526
  Receipt Date: 20110516
  Transmission Date: 20111010
  Serious: Yes (Hospitalization, Other)
  Sender: FDA-Public Use
  Company Number: US-ELI_LILLY_AND_COMPANY-US201104004668

PATIENT
  Age: 76 Year
  Sex: Female

DRUGS (5)
  1. CYMBALTA [Suspect]
     Indication: DEPRESSION
     Dosage: 30 MG, QD
     Route: 048
     Dates: start: 20100909, end: 20110331
  2. CYMBALTA [Suspect]
     Dosage: 30 MG, QD
  3. CYMBALTA [Suspect]
     Dosage: 60 MG, QD
  4. CALCIUM CARBONATE [Concomitant]
     Indication: SUPPLEMENTATION THERAPY
  5. LORAZEPAM [Concomitant]
     Dosage: 0.5 MG, UNKNOWN

REACTIONS (6)
  - DEPRESSION [None]
  - CONSTIPATION [None]
  - TREMOR [None]
  - ANXIETY [None]
  - PANIC DISORDER [None]
  - SUICIDAL IDEATION [None]
